FAERS Safety Report 11490623 (Version 1)
Quarter: 2015Q3

REPORT INFORMATION
  Report Type: Spontaneous
  Country: None (occurrence: US)
  Receive Date: 20150910
  Receipt Date: 20150910
  Transmission Date: 20151125
  Serious: No
  Sender: FDA-Public Use
  Company Number: US-FRESENIUS KABI-FK201504267

PATIENT

DRUGS (1)
  1. PROTAMINE SULFATE INJECTION, USP [Suspect]
     Active Substance: PROTAMINE SULFATE
     Indication: PROCOAGULANT THERAPY
     Route: 065

REACTIONS (1)
  - Drug ineffective [Unknown]
